FAERS Safety Report 5660158-3 (Version None)
Quarter: 2008Q1

REPORT INFORMATION
  Report Type: 
  Country: None (occurrence: None)
  Receive Date: 20080306
  Receipt Date: 20080222
  Transmission Date: 20080703
  Serious: Yes (Hospitalization)
  Sender: FDA-Public Use
  Company Number: 2008BI002926

PATIENT
  Sex: Male

DRUGS (18)
  1. TYSABRI [Suspect]
     Indication: MULTIPLE SCLEROSIS
     Dosage: 300 MG; QM; IV
     Route: 042
     Dates: start: 20061003, end: 20070906
  2. COREG [Concomitant]
  3. LACTULOSE [Concomitant]
  4. NEPHROVITE [Concomitant]
  5. SENNA [Concomitant]
  6. AVODART [Concomitant]
  7. OXYCODONE HCL [Concomitant]
  8. AMBIEN [Concomitant]
  9. FLOMAX [Concomitant]
  10. CAUDET [Concomitant]
  11. PRILOSEC [Concomitant]
  12. ATARAX [Concomitant]
  13. LEXAPRO [Concomitant]
  14. MICARDIS [Concomitant]
  15. LASIX [Concomitant]
  16. ALLOPURINOL [Concomitant]
  17. ISOSORBIDE DINITRATE [Concomitant]
  18. ACTOS [Concomitant]

REACTIONS (15)
  - CARDIAC FAILURE CONGESTIVE [None]
  - CERVICAL CORD COMPRESSION [None]
  - DEHYDRATION [None]
  - DIASTOLIC DYSFUNCTION [None]
  - GAIT DISTURBANCE [None]
  - HAEMODIALYSIS [None]
  - INTERVERTEBRAL DISC PROTRUSION [None]
  - MITRAL VALVE INCOMPETENCE [None]
  - NEPHROLITHIASIS [None]
  - ORAL INTAKE REDUCED [None]
  - POST PROCEDURAL COMPLICATION [None]
  - RENAL CYST [None]
  - RENAL FAILURE ACUTE [None]
  - TRICUSPID VALVE INCOMPETENCE [None]
  - URINARY TRACT INFECTION [None]
